FAERS Safety Report 8913357 (Version 1)
Quarter: 2012Q4

REPORT INFORMATION
  Report Type: Spontaneous
  Country: US (occurrence: None)
  Receive Date: 20121114
  Receipt Date: 20121114
  Transmission Date: 20130627
  Serious: No
  Sender: FDA-Public Use
  Company Number: 2135225-2012-00094

PATIENT
  Age: 51 Year
  Sex: Female

DRUGS (2)
  1. ASCLERA [Suspect]
     Indication: SCLEROTHERAPY
     Dosage: 10ml, 1st session, inj
     Dates: start: 20121018
  2. ASCLERA [Suspect]
     Indication: SPIDER VEIN
     Dosage: 10ml, 1st session, inj
     Dates: start: 20121018

REACTIONS (6)
  - Injection site erythema [None]
  - Injection site urticaria [None]
  - Injection site pain [None]
  - Injection site warmth [None]
  - Skin necrosis [None]
  - Wound [None]
